FAERS Safety Report 19967085 (Version 2)
Quarter: 2022Q3

REPORT INFORMATION
  Report Type: Report from Study
  Country: US (occurrence: None)
  Receive Date: 20211019
  Receipt Date: 20220913
  Transmission Date: 20221026
  Serious: Yes (Hospitalization)
  Sender: FDA-Public Use
  Company Number: US-ROCHE-2934924

PATIENT
  Age: 68 Year
  Sex: Female
  Weight: 87.6 kg

DRUGS (1)
  1. ATEZOLIZUMAB [Suspect]
     Active Substance: ATEZOLIZUMAB
     Indication: Colorectal cancer metastatic
     Dosage: ON 10/MAY/2021, MOST RECENT DOSE PRIOR TO ADVERSE EVENT.
     Route: 042
     Dates: start: 20210412

REACTIONS (2)
  - Enterocolitis infectious [Recovering/Resolving]
  - Upper respiratory tract infection [Recovered/Resolved]

NARRATIVE: CASE EVENT DATE: 20210522
